FAERS Safety Report 6170553-4 (Version None)
Quarter: 2009Q2

REPORT INFORMATION
  Report Type: 
  Country: None (occurrence: None)
  Receive Date: 20090428
  Receipt Date: 20090416
  Transmission Date: 20091009
  Serious: Yes (Hospitalization, Other)
  Sender: FDA-Public Use
  Company Number: US-ELI_LILLY_AND_COMPANY-US200904003811

PATIENT
  Sex: Female

DRUGS (2)
  1. FORTEO [Suspect]
  2. THYROID TAB [Concomitant]

REACTIONS (1)
  - CEREBROVASCULAR ACCIDENT [None]
